FAERS Safety Report 20669106 (Version 1)
Quarter: 2022Q2

REPORT INFORMATION
  Report Type: Spontaneous
  Country: RO (occurrence: None)
  Receive Date: 20220404
  Receipt Date: 20220404
  Transmission Date: 20220721
  Serious: Yes (Other)
  Sender: FDA-Public Use
  Company Number: 2022A134915

PATIENT
  Age: 29 Year
  Sex: Female

DRUGS (6)
  1. SYMBICORT [Suspect]
     Active Substance: BUDESONIDE\FORMOTEROL FUMARATE DIHYDRATE
     Indication: Asthma
     Route: 055
     Dates: start: 2020
  2. TIOTROPIU [Concomitant]
     Dosage: 18 ?G 1X1 PUFF/DAY/INHALATOR
     Route: 065
  3. MONTELUKAST [Concomitant]
     Active Substance: MONTELUKAST SODIUM
     Route: 065
  4. AZELASTINE HYDROCHLORIDE\FLUTICASONE PROPIONATE [Concomitant]
     Active Substance: AZELASTINE HYDROCHLORIDE\FLUTICASONE PROPIONATE
     Dosage: 137/50 ?G 2X1 PUFF/DAY/INTRANASAL
     Route: 065
  5. RUPATADINE [Concomitant]
     Active Substance: RUPATADINE
     Route: 065
  6. FASENRA [Concomitant]
     Active Substance: BENRALIZUMAB
     Route: 065
     Dates: start: 20210811

REACTIONS (1)
  - Asthma [Recovered/Resolved]

NARRATIVE: CASE EVENT DATE: 20200101
